FAERS Safety Report 25732148 (Version 1)
Quarter: 2025Q3

REPORT INFORMATION
  Report Type: Spontaneous
  Country: US (occurrence: None)
  Receive Date: 20250827
  Receipt Date: 20250827
  Transmission Date: 20251020
  Serious: Yes (Life-Threatening, Hospitalization, Other)
  Sender: FDA-CTU
  Company Number: None

PATIENT
  Age: 57 Year
  Sex: Female
  Weight: 107 kg

DRUGS (1)
  1. VUMERITY [Suspect]
     Active Substance: DIROXIMEL FUMARATE
     Indication: Multiple sclerosis
     Dosage: 462 MG TWICE A DAY ORAL ?
     Route: 048

REACTIONS (11)
  - Large intestine perforation [None]
  - Peritonitis [None]
  - Septic shock [None]
  - Metabolic acidosis [None]
  - Nonspecific reaction [None]
  - Hypoxia [None]
  - Shock [None]
  - Intra-abdominal fluid collection [None]
  - Spleen scan abnormal [None]
  - Infarction [None]
  - Abscess [None]

NARRATIVE: CASE EVENT DATE: 20250816
